FAERS Safety Report 15005574 (Version 1)
Quarter: 2018Q2

REPORT INFORMATION
  Report Type: Spontaneous
  Country: CA (occurrence: CA)
  Receive Date: 20180613
  Receipt Date: 20180613
  Transmission Date: 20180711
  Serious: Yes (Other)
  Sender: FDA-Public Use
  Company Number: CA-PFIZER INC-2018226478

PATIENT
  Age: 35 Year
  Sex: Female

DRUGS (1)
  1. ATIVAN [Suspect]
     Active Substance: LORAZEPAM
     Dosage: UNK
     Dates: start: 2018

REACTIONS (2)
  - Condition aggravated [Unknown]
  - Coeliac disease [Unknown]

NARRATIVE: CASE EVENT DATE: 2018
